FAERS Safety Report 23045956 (Version 2)
Quarter: 2023Q4

REPORT INFORMATION
  Report Type: Spontaneous
  Country: US (occurrence: None)
  Receive Date: 20231009
  Receipt Date: 20231025
  Transmission Date: 20240110
  Serious: Yes (Other)
  Sender: FDA-Public Use
  Company Number: US-ROCHE-3433840

PATIENT
  Sex: Male

DRUGS (2)
  1. NUTROPIN AQ [Suspect]
     Active Substance: SOMATROPIN
     Indication: Hypopituitarism
     Dosage: NUSPIN 20MG/2ML, 2.2MG DAILY 6 DAYS PER WEEK
     Route: 058
  2. NUTROPIN AQ [Suspect]
     Active Substance: SOMATROPIN

REACTIONS (3)
  - Device breakage [Unknown]
  - Device physical property issue [Unknown]
  - No adverse event [Unknown]
